FAERS Safety Report 22193502 (Version 1)
Quarter: 2023Q2

REPORT INFORMATION
  Report Type: Spontaneous
  Country: US (occurrence: US)
  Receive Date: 20230410
  Receipt Date: 20230410
  Transmission Date: 20230721
  Serious: Yes (Other)
  Sender: FDA-Public Use
  Company Number: US-MALLINCKRODT-MNK202300792

PATIENT
  Sex: Male
  Weight: 26 kg

DRUGS (7)
  1. CORTICOTROPIN [Suspect]
     Active Substance: CORTICOTROPIN
     Indication: Infantile spasms
     Dosage: DAY 1 TO 14: INJECT 36 UNITS TWICE DAILY
     Route: 058
     Dates: start: 20220216, end: 2022
  2. CORTICOTROPIN [Suspect]
     Active Substance: CORTICOTROPIN
     Indication: Disease susceptibility
     Dosage: 15 TO 17: INJECT 16 UNITS EVERY MORNING
     Route: 058
     Dates: start: 2022, end: 2022
  3. CORTICOTROPIN [Suspect]
     Active Substance: CORTICOTROPIN
     Dosage: DAY 18 TO 20: INJECT 8 UNITS EVERY MORNING.
     Route: 058
     Dates: start: 2022, end: 2022
  4. CORTICOTROPIN [Suspect]
     Active Substance: CORTICOTROPIN
     Dosage: DAY 21 TO 23: INJECT 4 UNIT EVERY MORNING.
     Route: 058
     Dates: start: 2022, end: 2022
  5. CORTICOTROPIN [Suspect]
     Active Substance: CORTICOTROPIN
     Dosage: DAY 24 TO 29: INJECT 4 UNITS EVERY OTHER MORNING (INJECT ON DAYS 25, 27, 29)
     Route: 058
     Dates: start: 2022, end: 2022
  6. VIGABATRIN [Concomitant]
     Active Substance: VIGABATRIN
     Indication: Product used for unknown indication
     Dosage: UNKNOWN
  7. LEVETIRACETAM [Concomitant]
     Active Substance: LEVETIRACETAM
     Indication: Product used for unknown indication
     Dosage: UNKNOWN

REACTIONS (1)
  - Cortical visual impairment [Not Recovered/Not Resolved]
